FAERS Safety Report 7814912-X (Version None)
Quarter: 2011Q4

REPORT INFORMATION
  Report Type: 
  Country: None (occurrence: None)
  Receive Date: 20111014
  Receipt Date: 20111007
  Transmission Date: 20120403
  Serious: Yes (Hospitalization, Other)
  Sender: FDA-Public Use
  Company Number: FR-UCBSA-041775

PATIENT
  Age: 68 Year
  Sex: Female

DRUGS (13)
  1. LERCANIDIPINE [Concomitant]
  2. ACETAMINOPHEN [Concomitant]
  3. CIMZIA [Suspect]
     Route: 058
     Dates: start: 20110101, end: 20110101
  4. ACTONEL [Concomitant]
  5. NOVOMIX [Concomitant]
  6. NOVORAPID [Concomitant]
  7. FLECAINIDE ACETATE [Concomitant]
  8. CIMZIA [Suspect]
     Indication: RHEUMATOID ARTHRITIS
     Dosage: 2 X 200MG
     Route: 058
     Dates: start: 20110712, end: 20110101
  9. NEXIUM [Concomitant]
  10. LASIX [Concomitant]
  11. MORPHINE SULFATE [Concomitant]
  12. RAMIPRIL [Concomitant]
  13. PREDNISONE [Concomitant]

REACTIONS (4)
  - BLISTER [None]
  - TRANSIENT ISCHAEMIC ATTACK [None]
  - VIITH NERVE PARALYSIS [None]
  - PRURITUS [None]
